FAERS Safety Report 7551171-X (Version None)
Quarter: 2011Q2

REPORT INFORMATION
  Report Type: 
  Country: None (occurrence: None)
  Receive Date: 20110616
  Receipt Date: 20110602
  Transmission Date: 20111010
  Serious: Yes (Other)
  Sender: FDA-Public Use
  Company Number: PHHY2011BR48634

PATIENT
  Sex: Female

DRUGS (1)
  1. EXFORGE HCT [Suspect]
     Dosage: 160 MG OF VALS/25 MG OF HYDRO/UNKNOWN MG OF AMLO

REACTIONS (1)
  - CEREBROVASCULAR ACCIDENT [None]
